FAERS Safety Report 5023584-1 (Version None)
Quarter: 2006Q2

REPORT INFORMATION
  Report Type: 
  Country: None (occurrence: None)
  Receive Date: 20060606
  Receipt Date: 20060531
  Transmission Date: 20061013
  Serious: Yes (Disabling, Congenital Anomaly)
  Sender: FDA-Public Use
  Company Number: FLZ20060002

PATIENT
  Sex: Male
  Weight: 3.045 kg

DRUGS (7)
  1. FLUCONAZOLE [Suspect]
     Indication: VAGINAL CANDIDIASIS
     Dosage: 800 MG DAILY PO
     Route: 048
  2. FLUCONAZOLE [Suspect]
     Indication: VAGINAL CANDIDIASIS
     Dosage: 800 MG DAILY PO
     Route: 048
  3. EFAVIRENZ [Concomitant]
  4. NEVIRAPINE [Concomitant]
  5. METHADONE HCL [Concomitant]
  6. PENTAMIDINE ISETHIONATE [Concomitant]
  7. SEPTRA [Concomitant]

REACTIONS (23)
  - ANOMALY OF EXTERNAL EAR CONGENITAL [None]
  - BACTERAEMIA [None]
  - CEREBRAL DISORDER [None]
  - CLONUS [None]
  - CRANIOSYNOSTOSIS [None]
  - DEAFNESS [None]
  - DEVELOPMENTAL DELAY [None]
  - DRUG EXPOSURE DURING PREGNANCY [None]
  - DRUG WITHDRAWAL SYNDROME NEONATAL [None]
  - ELECTROENCEPHALOGRAM ABNORMAL [None]
  - EXTENSOR PLANTAR RESPONSE [None]
  - EYELID PTOSIS [None]
  - FACIAL DYSMORPHISM [None]
  - GRAND MAL CONVULSION [None]
  - HYPERTELORISM OF ORBIT [None]
  - JOINT CONTRACTURE [None]
  - KYPHOSIS [None]
  - MULTIPLE CONGENITAL ABNORMALITIES [None]
  - PNEUMONIA STREPTOCOCCAL [None]
  - PREMATURE CLOSURE OF CRANIAL SUTURES [None]
  - SYNOSTOSIS [None]
  - TOE DEFORMITY [None]
  - TORTICOLLIS [None]
